FAERS Safety Report 17129138 (Version 1)
Quarter: 2019Q4

REPORT INFORMATION
  Report Type: Spontaneous
  Country: US (occurrence: US)
  Receive Date: 20191209
  Receipt Date: 20191209
  Transmission Date: 20200122
  Serious: No
  Sender: FDA-Public Use
  Company Number: US-ASTRAZENECA-2019SF76907

PATIENT
  Age: 41 Year
  Sex: Female

DRUGS (1)
  1. ZOMIG [Suspect]
     Active Substance: ZOLMITRIPTAN
     Indication: MIGRAINE
     Dosage: 6 SINGLE USE NASAL SPRAY UNITS5.0MG UNKNOWN
     Route: 045

REACTIONS (2)
  - Drug ineffective [Unknown]
  - Migraine [Unknown]
